FAERS Safety Report 8587752-4 (Version None)
Quarter: 2012Q3

REPORT INFORMATION
  Report Type: 
  Country: None (occurrence: None)
  Receive Date: 20120813
  Receipt Date: 20120802
  Transmission Date: 20120928
  Serious: Yes (Hospitalization)
  Sender: FDA-Public Use
  Company Number: PT-AMGEN-PRTSP2012050024

PATIENT
  Age: 65 Year
  Sex: Male
  Weight: 45 kg

DRUGS (4)
  1. ENBREL [Suspect]
     Indication: ANKYLOSING SPONDYLITIS
     Dosage: 50 MG, WEEKLY
     Route: 058
     Dates: start: 20041004, end: 20120515
  2. SPIRIVA [Concomitant]
     Indication: BRONCHOPULMONARY DISEASE
     Dosage: 0.0225 MG, 1X/DAY
     Route: 055
     Dates: start: 20100101
  3. BUDESONIDE [Interacting]
     Indication: BRONCHOPULMONARY DISEASE
     Dosage: 400 UG, 2X/DAY
     Route: 055
     Dates: start: 20050101
  4. FORMOTEROL FUMARATE [Concomitant]
     Indication: BRONCHOPULMONARY DISEASE
     Dosage: 1 DF, 2X/DAY
     Route: 055
     Dates: start: 20100101

REACTIONS (2)
  - DRUG INTERACTION [None]
  - BRONCHOPULMONARY ASPERGILLOSIS [None]
